FAERS Safety Report 7374663-5 (Version None)
Quarter: 2011Q1

REPORT INFORMATION
  Report Type: 
  Country: None (occurrence: None)
  Receive Date: 20110325
  Receipt Date: 20100629
  Transmission Date: 20110831
  Serious: No
  Sender: FDA-Public Use
  Company Number: US-MYLANLABS-2010S1011617

PATIENT
  Age: 53 Year
  Sex: Male

DRUGS (2)
  1. FENTANYL-100 [Suspect]
  2. FENTANYL-100 [Suspect]

REACTIONS (3)
  - DISORIENTATION [None]
  - EXPRESSIVE LANGUAGE DISORDER [None]
  - FEELING ABNORMAL [None]
